FAERS Safety Report 13554012 (Version 2)
Quarter: 2017Q2

REPORT INFORMATION
  Report Type: Spontaneous
  Country: US (occurrence: US)
  Receive Date: 20170517
  Receipt Date: 20170623
  Transmission Date: 20170830
  Serious: Yes (Other)
  Sender: FDA-Public Use
  Company Number: GXBR2017US001645

PATIENT
  Sex: Female
  Weight: 57.6 kg

DRUGS (7)
  1. LATANOPROST. [Concomitant]
     Active Substance: LATANOPROST
     Indication: GLAUCOMA
     Dosage: 1 GTT, QD OU
     Route: 047
     Dates: start: 2014
  2. KETOROLAC [Concomitant]
     Active Substance: KETOROLAC\KETOROLAC TROMETHAMINE
     Indication: PROPHYLAXIS
     Dosage: UNK GTT, TID IN RIGHT EYE
     Route: 047
     Dates: start: 201704
  3. PREDNISOLONE. [Concomitant]
     Active Substance: PREDNISOLONE
     Indication: PROPHYLAXIS
     Dosage: UNK GTT, TID IN RIGHT EYE
     Route: 047
     Dates: start: 201704
  4. LISINOPRIL TABLETS, USP [Suspect]
     Active Substance: LISINOPRIL
     Indication: BLOOD PRESSURE MEASUREMENT
     Dosage: 20 MG, BID
     Route: 048
     Dates: start: 2014
  5. NIFEDIPINE. [Concomitant]
     Active Substance: NIFEDIPINE
     Indication: BLOOD PRESSURE MEASUREMENT
     Dosage: 30 MG, QD
     Route: 048
     Dates: start: 2014
  6. AZOPT [Concomitant]
     Active Substance: BRINZOLAMIDE
     Indication: GLAUCOMA
     Dosage: UNK GTT, TID OU
     Route: 047
     Dates: start: 2014
  7. OFLOXACIN. [Concomitant]
     Active Substance: OFLOXACIN
     Indication: INFECTION PROPHYLAXIS
     Dosage: UNK GTT, TID IN RIGHT EYE
     Route: 047
     Dates: start: 201704

REACTIONS (6)
  - Headache [Recovered/Resolved]
  - Hypertension [Recovered/Resolved]
  - Nightmare [Unknown]
  - Sleep disorder [Unknown]
  - Malaise [Unknown]
  - Depressed mood [Unknown]
